FAERS Safety Report 6765969-9 (Version None)
Quarter: 2010Q2

REPORT INFORMATION
  Report Type: 
  Country: None (occurrence: None)
  Receive Date: 20100611
  Receipt Date: 20100604
  Transmission Date: 20101027
  Serious: Yes (Hospitalization)
  Sender: FDA-Public Use
  Company Number: B0659388A

PATIENT
  Sex: Male

DRUGS (1)
  1. ALLI [Suspect]
     Indication: DRUG USE FOR UNKNOWN INDICATION
     Route: 065
     Dates: start: 20100501

REACTIONS (7)
  - ABDOMINAL DISTENSION [None]
  - ADVERSE DRUG REACTION [None]
  - CONSTIPATION [None]
  - DISABILITY [None]
  - GASTROINTESTINAL DISORDER [None]
  - NAUSEA [None]
  - PRODUCT QUALITY ISSUE [None]
